FAERS Safety Report 12769671 (Version 3)
Quarter: 2020Q4

REPORT INFORMATION
  Report Type: Other
  Country: GR (occurrence: GR)
  Receive Date: 20160922
  Receipt Date: 20201221
  Transmission Date: 20210113
  Serious: Yes (Other)
  Sender: FDA-Public Use
  Company Number: GR-ROCHE-640161

PATIENT
  Age: 25 Year
  Sex: Female

DRUGS (1)
  1. BEVACIZUMAB. [Suspect]
     Active Substance: BEVACIZUMAB
     Indication: CHOROIDAL NEOVASCULARISATION
     Route: 050

REACTIONS (4)
  - Abortion spontaneous [Unknown]
  - Intentional product use issue [Unknown]
  - Off label use [Unknown]
  - Maternal exposure during pregnancy [Unknown]
